FAERS Safety Report 4852454-4 (Version None)
Quarter: 2005Q4

REPORT INFORMATION
  Report Type: 
  Country: None (occurrence: None)
  Receive Date: 20051130
  Receipt Date: 20050802
  Transmission Date: 20060501
  Serious: No
  Sender: FDA-Public Use
  Company Number: WAES 0506USA01763

PATIENT
  Age: 50 Year
  Sex: Female
  Weight: 73.9363 kg

DRUGS (1)
  1. ZETIA [Suspect]
     Indication: HYPERCHOLESTEROLAEMIA
     Dosage: 10 MG/DAILY/PO
     Route: 048
     Dates: start: 20050426, end: 20050523

REACTIONS (6)
  - ARTHRALGIA [None]
  - ASTHENIA [None]
  - FATIGUE [None]
  - GRIP STRENGTH DECREASED [None]
  - MYALGIA [None]
  - PAIN IN EXTREMITY [None]
